FAERS Safety Report 24195358 (Version 2)
Quarter: 2024Q3

REPORT INFORMATION
  Report Type: Spontaneous
  Country: FR (occurrence: FR)
  Receive Date: 20240809
  Receipt Date: 20240815
  Transmission Date: 20241017
  Serious: Yes (Other)
  Sender: OTSUKA
  Company Number: None

PATIENT
  Age: 42 Year
  Sex: Male
  Weight: 97 kg

DRUGS (1)
  1. ABILIFY [Suspect]
     Active Substance: ARIPIPRAZOLE
     Indication: Schizophrenia
     Dosage: 15 MG, QD (1 DOSAGE FORM)
     Route: 048
     Dates: start: 20080101, end: 20180101

REACTIONS (2)
  - Paraphilia [Recovered/Resolved]
  - Hypersexuality [Recovered/Resolved]

NARRATIVE: CASE EVENT DATE: 20080101
